FAERS Safety Report 4767042-8 (Version None)
Quarter: 2005Q3

REPORT INFORMATION
  Report Type: 
  Country: None (occurrence: None)
  Receive Date: 20050908
  Receipt Date: 20050818
  Transmission Date: 20060218
  Serious: Yes (Death)
  Sender: FDA-Public Use
  Company Number: 217500

PATIENT
  Age: 44 Year
  Sex: Male
  Weight: 62.5 kg

DRUGS (11)
  1. HERCEPTIN [Suspect]
     Indication: GASTRIC CANCER
     Dosage: 375 MG, Q3W, INTRAVENOUS
     Route: 042
     Dates: start: 20050411, end: 20050729
  2. DOCETAXEL (DOCETAXEL) [Suspect]
     Indication: GASTRIC CANCER
     Dosage: 141 MG, Q3W, INTRAVENOUS
     Route: 042
     Dates: start: 20050411
  3. CISPLATIN [Suspect]
     Indication: GASTRIC CANCER
     Dosage: 141 MG, Q3W, INTRAVENOUS
     Route: 042
     Dates: start: 20050411, end: 20050729
  4. MORPHINE [Concomitant]
  5. NEXIUM [Concomitant]
  6. AMBROTOSE (NUTRITIONAL SUPPLEMENT) [Concomitant]
  7. OXYCOCET (ACETAMINOPHEN) [Concomitant]
  8. MORPHINE SULFATE [Concomitant]
  9. DURAGESIC-100 [Concomitant]
  10. MILK OF MAGNESIA (MILK OF MAGNESIA) [Concomitant]
  11. MAGNESIUM GLUCEPTATE (MAGNESIUM GLUCEPTATE) [Concomitant]

REACTIONS (9)
  - ANAEMIA [None]
  - BLOOD PRESSURE DECREASED [None]
  - DEPRESSED LEVEL OF CONSCIOUSNESS [None]
  - GASTRIC MUCOSAL LESION [None]
  - PULSE PRESSURE DECREASED [None]
  - RESUSCITATION [None]
  - TACHYCARDIA [None]
  - THROMBOSIS [None]
  - UPPER GASTROINTESTINAL HAEMORRHAGE [None]
